FAERS Safety Report 5186469-6 (Version None)
Quarter: 2006Q4

REPORT INFORMATION
  Report Type: 
  Country: None (occurrence: None)
  Receive Date: 20061213
  Receipt Date: 20061129
  Transmission Date: 20070319
  Serious: Yes (Disabling)
  Sender: FDA-Public Use
  Company Number: 2006S1000249

PATIENT
  Age: 68 Year
  Sex: Male

DRUGS (3)
  1. ACITRETIN [Suspect]
     Indication: SQUAMOUS CELL CARCINOMA
     Dosage: 25 MG; QD; PO
     Route: 048
     Dates: start: 20060401, end: 20061001
  2. CYCLOSPORINE [Concomitant]
  3. AZATHIOPRINE [Concomitant]

REACTIONS (1)
  - NO ADVERSE DRUG EFFECT [None]
